FAERS Safety Report 4337903-2 (Version None)
Quarter: 2004Q1

REPORT INFORMATION
  Report Type: 
  Country: None (occurrence: None)
  Receive Date: 20040329
  Receipt Date: 20040129
  Transmission Date: 20041129
  Serious: No
  Sender: FDA-Public Use
  Company Number: USA040157983

PATIENT
  Age: 10 Year
  Sex: Male
  Weight: 41 kg

DRUGS (1)
  1. STRATTERA [Suspect]
     Dosage: 25 MG/IN THE MORNING
     Dates: start: 20040127

REACTIONS (6)
  - DECREASED APPETITE [None]
  - FEELING ABNORMAL [None]
  - HEADACHE [None]
  - LETHARGY [None]
  - MOOD ALTERED [None]
  - NAUSEA [None]
